FAERS Safety Report 13340971 (Version 1)
Quarter: 2017Q1

REPORT INFORMATION
  Report Type: Spontaneous
  Country: US (occurrence: US)
  Receive Date: 20170316
  Receipt Date: 20170316
  Transmission Date: 20170428
  Serious: Yes (Hospitalization)
  Sender: FDA-Public Use
  Company Number: US-ASTRAZENECA-2017SE25970

PATIENT
  Age: 5519 Day
  Sex: Male
  Weight: 55.3 kg

DRUGS (32)
  1. NEXIUM [Suspect]
     Active Substance: ESOMEPRAZOLE MAGNESIUM
     Indication: IMPAIRED GASTRIC EMPTYING
     Dosage: TWO TIMES A DAY
     Route: 048
     Dates: end: 201612
  2. NEXIUM [Suspect]
     Active Substance: ESOMEPRAZOLE MAGNESIUM
     Indication: BACTERIAL INFECTION
     Dosage: TWO TIMES A DAY
     Route: 048
     Dates: end: 201612
  3. NEXIUM [Suspect]
     Active Substance: ESOMEPRAZOLE MAGNESIUM
     Indication: HELICOBACTER INFECTION
     Dosage: TWO TIMES A DAY
     Route: 048
     Dates: end: 201612
  4. NEXIUM [Suspect]
     Active Substance: ESOMEPRAZOLE MAGNESIUM
     Indication: DUODENAL ULCER
     Dosage: ESOMEPRAZOLE MAGNESIUM, 40 MG THREE TIMES A DAY
     Route: 048
  5. NEXIUM [Suspect]
     Active Substance: ESOMEPRAZOLE MAGNESIUM
     Indication: BACTERIAL INFECTION
     Dosage: ESOMEPRAZOLE MAGNESIUM, 40 MG THREE TIMES A DAY
     Route: 048
  6. VITAMIN B12 [Concomitant]
     Active Substance: CYANOCOBALAMIN
     Indication: VITAMIN B12 DECREASED
     Route: 065
     Dates: start: 201702
  7. NEXIUM [Suspect]
     Active Substance: ESOMEPRAZOLE MAGNESIUM
     Indication: HELICOBACTER INFECTION
     Dosage: ESOMEPRAZOLE MAGNESIUM, 40 MG DAILY
     Route: 048
     Dates: start: 201701
  8. VITAMIN D [Concomitant]
     Active Substance: CHOLECALCIFEROL
     Indication: VITAMIN D DECREASED
     Route: 065
     Dates: start: 201702
  9. MILK OF MAGNESIA [Concomitant]
     Active Substance: MAGNESIUM HYDROXIDE
     Indication: CONSTIPATION
     Dosage: TWO TIMES A DAY
     Route: 065
  10. VITAMIN B6 [Concomitant]
     Active Substance: PYRIDOXINE HYDROCHLORIDE
     Indication: HYPOVITAMINOSIS
     Route: 065
  11. MULTIVITAMIN [Concomitant]
     Active Substance: VITAMINS
     Indication: MALABSORPTION
     Dosage: DAILY
     Route: 065
  12. NEXIUM [Suspect]
     Active Substance: ESOMEPRAZOLE MAGNESIUM
     Indication: GASTROOESOPHAGEAL REFLUX DISEASE
     Dosage: TWO TIMES A DAY
     Route: 048
     Dates: end: 201612
  13. NEXIUM [Suspect]
     Active Substance: ESOMEPRAZOLE MAGNESIUM
     Indication: GASTRIC DISORDER
     Dosage: TWO TIMES A DAY
     Route: 048
     Dates: end: 201612
  14. NEXIUM [Suspect]
     Active Substance: ESOMEPRAZOLE MAGNESIUM
     Indication: GASTROOESOPHAGEAL REFLUX DISEASE
     Dosage: ESOMEPRAZOLE MAGNESIUM, 40 MG DAILY
     Route: 048
     Dates: start: 201701
  15. NEXIUM [Suspect]
     Active Substance: ESOMEPRAZOLE MAGNESIUM
     Indication: GASTRIC DISORDER
     Dosage: ESOMEPRAZOLE MAGNESIUM, 40 MG DAILY
     Route: 048
     Dates: start: 201701
  16. NEXIUM [Suspect]
     Active Substance: ESOMEPRAZOLE MAGNESIUM
     Indication: DUODENAL ULCER
     Dosage: ESOMEPRAZOLE MAGNESIUM, 40 MG DAILY
     Route: 048
     Dates: start: 201701
  17. NEXIUM [Suspect]
     Active Substance: ESOMEPRAZOLE MAGNESIUM
     Indication: SHORT-BOWEL SYNDROME
     Dosage: ESOMEPRAZOLE MAGNESIUM, 40 MG DAILY
     Route: 048
     Dates: start: 201701
  18. NEXIUM [Suspect]
     Active Substance: ESOMEPRAZOLE MAGNESIUM
     Indication: HELICOBACTER INFECTION
     Dosage: ESOMEPRAZOLE MAGNESIUM, 40 MG THREE TIMES A DAY
     Route: 048
  19. NEXIUM [Suspect]
     Active Substance: ESOMEPRAZOLE MAGNESIUM
     Indication: SHORT-BOWEL SYNDROME
     Dosage: ESOMEPRAZOLE MAGNESIUM, 40 MG THREE TIMES A DAY
     Route: 048
  20. ERYTHROMYCIN. [Concomitant]
     Active Substance: ERYTHROMYCIN
     Indication: GASTRIC DISORDER
     Route: 065
  21. STOOL SOFTENER (DOCUSATE) [Concomitant]
     Active Substance: DOCUSATE
     Indication: CONSTIPATION
     Dosage: TWO TIMES A DAY
     Route: 065
  22. NEXIUM [Suspect]
     Active Substance: ESOMEPRAZOLE MAGNESIUM
     Indication: DUODENAL ULCER
     Dosage: TWO TIMES A DAY
     Route: 048
     Dates: end: 201612
  23. NEXIUM [Suspect]
     Active Substance: ESOMEPRAZOLE MAGNESIUM
     Indication: SHORT-BOWEL SYNDROME
     Dosage: TWO TIMES A DAY
     Route: 048
     Dates: end: 201612
  24. NEXIUM [Suspect]
     Active Substance: ESOMEPRAZOLE MAGNESIUM
     Indication: BACTERIAL INFECTION
     Dosage: ESOMEPRAZOLE MAGNESIUM, 40 MG DAILY
     Route: 048
     Dates: start: 201701
  25. COPPER [Concomitant]
     Active Substance: COPPER
     Indication: HYPOVITAMINOSIS
     Route: 065
  26. NEXIUM [Suspect]
     Active Substance: ESOMEPRAZOLE MAGNESIUM
     Indication: GASTROOESOPHAGEAL REFLUX DISEASE
     Dosage: ESOMEPRAZOLE MAGNESIUM, 40 MG THREE TIMES A DAY
     Route: 048
  27. FOLIC ACID. [Concomitant]
     Active Substance: FOLIC ACID
     Indication: HYPOVITAMINOSIS
     Route: 065
  28. TUMS [Concomitant]
     Active Substance: CALCIUM CARBONATE
     Dosage: THREE TIMES A DAY
     Route: 065
  29. NEXIUM [Suspect]
     Active Substance: ESOMEPRAZOLE MAGNESIUM
     Indication: IMPAIRED GASTRIC EMPTYING
     Dosage: ESOMEPRAZOLE MAGNESIUM, 40 MG DAILY
     Route: 048
     Dates: start: 201701
  30. NEXIUM [Suspect]
     Active Substance: ESOMEPRAZOLE MAGNESIUM
     Indication: GASTRIC DISORDER
     Dosage: ESOMEPRAZOLE MAGNESIUM, 40 MG THREE TIMES A DAY
     Route: 048
  31. NEXIUM [Suspect]
     Active Substance: ESOMEPRAZOLE MAGNESIUM
     Indication: IMPAIRED GASTRIC EMPTYING
     Dosage: ESOMEPRAZOLE MAGNESIUM, 40 MG THREE TIMES A DAY
     Route: 048
  32. HYOSCYAMINE. [Concomitant]
     Active Substance: HYOSCYAMINE
     Indication: ABDOMINAL PAIN UPPER
     Dosage: 0.125MG UNKNOWN
     Route: 048
     Dates: start: 201702, end: 201703

REACTIONS (16)
  - Muscle spasms [Unknown]
  - Gastric disorder [Unknown]
  - Malabsorption [Unknown]
  - Vomiting [Unknown]
  - Product substitution issue [Unknown]
  - Off label use [Recovered/Resolved]
  - Off label use [Recovered/Resolved]
  - Constipation [Unknown]
  - Food poisoning [Unknown]
  - Weight fluctuation [Unknown]
  - Drug ineffective [Not Recovered/Not Resolved]
  - Dyspepsia [Not Recovered/Not Resolved]
  - Vitamin B12 decreased [Unknown]
  - Abdominal pain upper [Unknown]
  - Vitamin D decreased [Unknown]
  - Malaise [Unknown]

NARRATIVE: CASE EVENT DATE: 20170308
